FAERS Safety Report 4848688-5 (Version None)
Quarter: 2005Q4

REPORT INFORMATION
  Report Type: 
  Country: None (occurrence: None)
  Receive Date: 20051206
  Receipt Date: 20051124
  Transmission Date: 20060501
  Serious: Yes (Disabling)
  Sender: FDA-Public Use
  Company Number: 2005RL000105

PATIENT
  Age: 74 Year
  Sex: Male

DRUGS (9)
  1. OMACOR [Suspect]
     Indication: HIGH DENSITY LIPOPROTEIN ABNORMAL
     Dosage: 1 GM; QD; PO
     Route: 048
     Dates: start: 20050604, end: 20050620
  2. BISOPROLOL FUMARATE [Suspect]
     Indication: MYOCARDIAL ISCHAEMIA
     Dosage: 2.5 MG; QD;
     Dates: start: 20050604, end: 20050620
  3. QUININE SULFATE [Suspect]
     Indication: MUSCLE SPASMS
     Dosage: 200 MG;
     Dates: start: 20050514, end: 20050716
  4. BECLAZONE [Concomitant]
  5. SALBUTAMOL [Concomitant]
  6. PLAVIX [Concomitant]
  7. ASPIRIN [Concomitant]
  8. TAMSULOSIN [Concomitant]
  9. VERAPAMIL [Concomitant]

REACTIONS (3)
  - PLATELET COUNT DECREASED [None]
  - URTICARIA [None]
  - VASCULITIS [None]
